FAERS Safety Report 4929466-5 (Version None)
Quarter: 2006Q1

REPORT INFORMATION
  Report Type: 
  Country: None (occurrence: None)
  Receive Date: 20060127
  Receipt Date: 20051025
  Transmission Date: 20060701
  Serious: Yes (Other)
  Sender: FDA-Public Use
  Company Number: 2005147850

PATIENT
  Sex: Male
  Weight: 112.4921 kg

DRUGS (1)
  1. LYRICA [Suspect]
     Indication: ARNOLD-CHIARI MALFORMATION
     Dosage: 150 MG (50 MG, 3 IN 1 D)
     Dates: start: 20051013

REACTIONS (1)
  - HEADACHE [None]
